FAERS Safety Report 18247719 (Version 1)
Quarter: 2020Q3

REPORT INFORMATION
  Report Type: Report from Study
  Country: US (occurrence: US)
  Receive Date: 20200909
  Receipt Date: 20200909
  Transmission Date: 20201103
  Serious: Yes (Hospitalization, Other)
  Sender: FDA-Public Use
  Company Number: US-JNJFOC-A-NJ2020-201660

PATIENT
  Age: 52 Year
  Sex: Female
  Weight: 76.27 kg

DRUGS (5)
  1. EPOPROSTENOL SODIUM. [Suspect]
     Active Substance: EPOPROSTENOL SODIUM
     Indication: PULMONARY ARTERIAL HYPERTENSION
     Route: 042
  2. EPOPROSTENOL SODIUM. [Suspect]
     Active Substance: EPOPROSTENOL SODIUM
     Route: 042
  3. OPSUMIT [Suspect]
     Active Substance: MACITENTAN
     Indication: PULMONARY ARTERIAL HYPERTENSION
     Dosage: 10 MG, QD
     Route: 048
  4. TADALAFIL. [Concomitant]
     Active Substance: TADALAFIL
  5. REMODULIN [Suspect]
     Active Substance: TREPROSTINIL
     Dates: start: 20200817

REACTIONS (19)
  - Catheter site related reaction [Unknown]
  - Nasal congestion [Unknown]
  - Catheter site rash [Recovering/Resolving]
  - Constipation [Unknown]
  - Pneumonia [Unknown]
  - Catheter site pruritus [Recovering/Resolving]
  - Nausea [Unknown]
  - Dyspnoea exertional [Unknown]
  - Catheter site erythema [Unknown]
  - Catheter site pain [Unknown]
  - Productive cough [Unknown]
  - Palpitations [Unknown]
  - Hyperhidrosis [Unknown]
  - Decreased appetite [Unknown]
  - Catheter site swelling [Unknown]
  - Dyspnoea at rest [Unknown]
  - Oropharyngeal pain [Unknown]
  - Device related infection [Unknown]
  - Nasopharyngitis [Unknown]
